FAERS Safety Report 9843040 (Version 2)
Quarter: 2015Q1

REPORT INFORMATION
  Report Type: Spontaneous
  Country: FR (occurrence: FR)
  Receive Date: 20140124
  Receipt Date: 20140125
  Transmission Date: 20150721
  Serious: Yes (Death)
  Sender: FDA-Public Use
  Company Number: FR-ACTAVIS-2013-24733

PATIENT
  Age: 79 Year
  Sex: Male

DRUGS (18)
  1. ESOMEPRAZOLE (UNKNOWN) [Suspect]
     Active Substance: ESOMEPRAZOLE
     Indication: PRODUCT USED FOR UNKNOWN INDICATION
     Dosage: 40 MG, DAILY
     Route: 048
     Dates: start: 20130830, end: 20130930
  2. PREDNISONE (UNKNOWN) [Suspect]
     Active Substance: PREDNISONE
     Indication: PRODUCT USED FOR UNKNOWN INDICATION
     Dosage: 75 MG, DAILY
     Route: 048
     Dates: start: 20130920, end: 20130930
  3. SPIRAMYCIN [Suspect]
     Active Substance: SPIRAMYCIN
     Indication: PRODUCT USED FOR UNKNOWN INDICATION
     Dosage: 6 MUI DAILY
     Route: 048
     Dates: start: 20130920, end: 20130930
  4. PENTAMIDINE [Concomitant]
     Active Substance: PENTAMIDINE
     Indication: PRODUCT USED FOR UNKNOWN INDICATION
     Dosage: 300 MG AS AEROSOL
     Route: 065
     Dates: start: 20130916
  5. REPAGLINIDE. [Suspect]
     Active Substance: REPAGLINIDE
     Indication: DIABETES MELLITUS
     Dosage: 10 MG, DAILY
     Route: 048
     Dates: start: 20130924, end: 20130930
  6. FUROSEMIDE (UNKNOWN) [Suspect]
     Active Substance: FUROSEMIDE
     Indication: PRODUCT USED FOR UNKNOWN INDICATION
     Dosage: 1 G, DAILY FROM 05-SEP-2013 (80 MG 1 IN 1 DAY)
     Route: 048
     Dates: start: 20130902, end: 20130930
  7. URAPIDIL [Suspect]
     Active Substance: URAPIDIL
     Indication: HYPERTENSION
     Dosage: 120 MG FROM 26-SEP (60 MG, DAILY)
     Route: 048
     Dates: start: 20130916, end: 20130930
  8. MIANSERIN [Suspect]
     Active Substance: MIANSERIN
     Indication: PRODUCT USED FOR UNKNOWN INDICATION
     Dosage: 10 MG, DAILY
     Route: 048
     Dates: start: 20130909, end: 20130930
  9. CALCIUM CARBONATE. [Suspect]
     Active Substance: CALCIUM CARBONATE
     Indication: PRODUCT USED FOR UNKNOWN INDICATION
     Dosage: 1.54 G, 6 IN 1 DAY
     Route: 048
     Dates: start: 20130904, end: 20130930
  10. LANTUS [Concomitant]
     Active Substance: INSULIN GLARGINE
     Indication: PRODUCT USED FOR UNKNOWN INDICATION
     Dosage: UNK, UNKNOWN
     Route: 065
     Dates: start: 20130923
  11. AMLODIPINE [Suspect]
     Active Substance: AMLODIPINE BESYLATE
     Indication: HYPERTENSION
     Dosage: 10 MG, DAILY
     Route: 048
     Dates: start: 20130830, end: 20130930
  12. BROMAZEPAM [Concomitant]
     Active Substance: BROMAZEPAM
     Indication: PRODUCT USED FOR UNKNOWN INDICATION
     Dosage: 6 MG: 1/2 TAB /DAY THROUGHOUT HSOPITALISATION
     Route: 065
  13. ECULIZUMAB [Suspect]
     Active Substance: ECULIZUMAB
     Indication: HAEMOLYTIC URAEMIC SYNDROME
     Dosage: 1ST INJECTION 900MG THEN 1200MG/WK
     Route: 042
     Dates: start: 20130905, end: 20130930
  14. CALCIUM FOLINATE [Suspect]
     Active Substance: LEUCOVORIN CALCIUM
     Indication: PRODUCT USED FOR UNKNOWN INDICATION
     Dosage: 12.5 MG, DAILY
     Route: 048
     Dates: start: 20130928, end: 20130930
  15. VITAMIN B12 [Concomitant]
     Active Substance: CYANOCOBALAMIN
     Indication: PRODUCT USED FOR UNKNOWN INDICATION
     Dosage: 1000 MG, DAILY
     Route: 048
     Dates: start: 20130908, end: 20130916
  16. TRAMADOL (UNKNOWN) [Suspect]
     Active Substance: TRAMADOL
     Indication: PRODUCT USED FOR UNKNOWN INDICATION
     Dosage: 50 MG, QID
     Route: 048
     Dates: start: 20130830, end: 20130930
  17. SEVELAMER [Suspect]
     Active Substance: SEVELAMER
     Indication: PRODUCT USED FOR UNKNOWN INDICATION
     Dosage: 800 MG, QID
     Route: 048
     Dates: start: 20130904, end: 20130930
  18. MIRCERA [Suspect]
     Active Substance: PEGZEREPOETIN ALFA
     Indication: PRODUCT USED FOR UNKNOWN INDICATION
     Dosage: 1 INJECTION ON 07 AND ON 21-SEP-2013
     Route: 058
     Dates: start: 20130907, end: 20130921

REACTIONS (2)
  - Cardio-respiratory arrest [Fatal]
  - Cardiac arrest [Fatal]

NARRATIVE: CASE EVENT DATE: 20130930
